FAERS Safety Report 18591558 (Version 1)
Quarter: 2020Q4

REPORT INFORMATION
  Report Type: Spontaneous
  Country: CZ (occurrence: CZ)
  Receive Date: 20201208
  Receipt Date: 20201208
  Transmission Date: 20210114
  Serious: Yes (Other)
  Sender: FDA-Public Use
  Company Number: NVSC2020CZ325300

PATIENT
  Age: 53 Year
  Sex: Female

DRUGS (1)
  1. DOCETAXEL. [Suspect]
     Active Substance: DOCETAXEL
     Indication: OVARIAN CANCER METASTATIC
     Dosage: TOTAL OF THREE CYCLES WAS APPLIED
     Route: 065
     Dates: start: 202006

REACTIONS (3)
  - Product use in unapproved indication [Unknown]
  - Ovarian cancer metastatic [Unknown]
  - Malignant neoplasm progression [Unknown]
